FAERS Safety Report 16969571 (Version 1)
Quarter: 2019Q4

REPORT INFORMATION
  Report Type: Spontaneous
  Country: US (occurrence: US)
  Receive Date: 20191029
  Receipt Date: 20191029
  Transmission Date: 20200122
  Serious: Yes (Hospitalization)
  Sender: FDA-Public Use
  Company Number: US-TEVA-2019-US-1128902

PATIENT
  Age: 55 Year
  Sex: Male

DRUGS (2)
  1. VALACICLOVIR [Suspect]
     Active Substance: VALACYCLOVIR HYDROCHLORIDE
     Dosage: TOOK IN THE MORNING OF THE DAY OF PRESENTATION
     Route: 048
  2. VALACICLOVIR [Suspect]
     Active Substance: VALACYCLOVIR HYDROCHLORIDE
     Indication: ORAL HERPES
     Dosage: TOOK AT THE NIGHT PRIOR TO THE PRESENTATION
     Route: 048

REACTIONS (2)
  - Overdose [Unknown]
  - Acute kidney injury [Recovered/Resolved]
